FAERS Safety Report 23150164 (Version 1)
Quarter: 2023Q4

REPORT INFORMATION
  Report Type: Spontaneous
  Country: GB (occurrence: GB)
  Receive Date: 20231106
  Receipt Date: 20231106
  Transmission Date: 20240110
  Serious: Yes (Life-Threatening, Other)
  Sender: FDA-Public Use
  Company Number: None

PATIENT
  Age: 24 Year
  Sex: Female

DRUGS (2)
  1. TOPIRAMATE [Suspect]
     Active Substance: TOPIRAMATE
     Indication: Migraine
     Dosage: TRYING TO WITHDRAW FROM TOPIRAMATE BUT OTHER MEDICATIONS ARE INEFFECTIVE
     Route: 048
     Dates: start: 20130415
  2. ACETAMINOPHEN [Concomitant]
     Active Substance: ACETAMINOPHEN

REACTIONS (4)
  - Sepsis [Unknown]
  - Amniotic cavity infection [Unknown]
  - Loss of consciousness [Unknown]
  - Haemorrhage [Unknown]
